FAERS Safety Report 7373465-3 (Version None)
Quarter: 2011Q1

REPORT INFORMATION
  Report Type: 
  Country: None (occurrence: None)
  Receive Date: 20110325
  Receipt Date: 20110316
  Transmission Date: 20110831
  Serious: No
  Sender: FDA-Public Use
  Company Number: US-BIOGENIDEC-2010BI030216

PATIENT
  Sex: Female
  Weight: 55 kg

DRUGS (3)
  1. TYSABRI [Suspect]
     Route: 042
     Dates: start: 20071228, end: 20101201
  2. TYSABRI [Suspect]
     Indication: MULTIPLE SCLEROSIS
     Route: 042
     Dates: start: 20050101, end: 20050101
  3. MEDICATION [NOS] [Concomitant]

REACTIONS (19)
  - PAIN IN EXTREMITY [None]
  - APHAGIA [None]
  - ALOPECIA [None]
  - ASTHENIA [None]
  - MEMORY IMPAIRMENT [None]
  - DYSPHONIA [None]
  - DIARRHOEA [None]
  - NARCOLEPSY [None]
  - MUSCULAR WEAKNESS [None]
  - DRUG WITHDRAWAL SYNDROME [None]
  - HEARING IMPAIRED [None]
  - WEIGHT DECREASED [None]
  - VOMITING [None]
  - FATIGUE [None]
  - TOOTH INFECTION [None]
  - BLOOD CHOLESTEROL INCREASED [None]
  - NAUSEA [None]
  - SENSATION OF HEAVINESS [None]
  - ABDOMINAL PAIN UPPER [None]
